FAERS Safety Report 20792649 (Version 1)
Quarter: 2022Q2

REPORT INFORMATION
  Report Type: Spontaneous
  Country: IN (occurrence: IN)
  Receive Date: 20220506
  Receipt Date: 20220506
  Transmission Date: 20220720
  Serious: Yes (Other)
  Sender: FDA-Public Use
  Company Number: IN-BRISTOL-MYERS SQUIBB COMPANY-2022-030552

PATIENT
  Age: 63 Year
  Sex: Male

DRUGS (1)
  1. NIVOLUMAB [Suspect]
     Active Substance: NIVOLUMAB
     Indication: Renal cell carcinoma stage IV

REACTIONS (6)
  - Rash maculo-papular [Unknown]
  - Erythema [Unknown]
  - Skin ulcer [Unknown]
  - Pruritus [Unknown]
  - Eczema [Unknown]
  - Skin bacterial infection [Unknown]
